FAERS Safety Report 20810905 (Version 1)
Quarter: 2022Q2

REPORT INFORMATION
  Report Type: Spontaneous
  Country: None (occurrence: PL)
  Receive Date: 20220510
  Receipt Date: 20220510
  Transmission Date: 20220721
  Serious: Yes (Hospitalization, Other)
  Sender: FDA-Public Use
  Company Number: PL-B.Braun Medical Inc.-2128639

PATIENT
  Age: 91 Year

DRUGS (34)
  1. ACETAMINOPHEN [Suspect]
     Active Substance: ACETAMINOPHEN
  2. POTASSIUM CHLORIDE [Suspect]
     Active Substance: POTASSIUM CHLORIDE
  3. ZOLPIDEM [Suspect]
     Active Substance: ZOLPIDEM TARTRATE
  4. BETAHISTINE HYDROCHLORIDE [Suspect]
     Active Substance: BETAHISTINE HYDROCHLORIDE
  5. LEVOTHYROXINE [Suspect]
     Active Substance: LEVOTHYROXINE
  6. ALBUTEROL [Suspect]
     Active Substance: ALBUTEROL
  7. DABIGATRAN [Suspect]
     Active Substance: DABIGATRAN
  8. ALPRAZOLAM [Suspect]
     Active Substance: ALPRAZOLAM
  9. METOPROLOL [Suspect]
     Active Substance: METOPROLOL
  10. TRAMADOL [Suspect]
     Active Substance: TRAMADOL
  11. DONEPEZIL [Suspect]
     Active Substance: DONEPEZIL
  12. OMEPRAZOLE [Suspect]
     Active Substance: OMEPRAZOLE
  13. RAMIPRIL [Suspect]
     Active Substance: RAMIPRIL
  14. BENSERAZIDE\LEVODOPA [Suspect]
     Active Substance: BENSERAZIDE\LEVODOPA
  15. FUROSEMIDE [Suspect]
     Active Substance: FUROSEMIDE
  16. HYDROXYZINE [Suspect]
     Active Substance: HYDROXYZINE HYDROCHLORIDE
  17. DEXTROSE\NIKETHAMIDE [Suspect]
     Active Substance: DEXTROSE\NIKETHAMIDE
  18. ATORVASTATIN CALCIUM [Suspect]
     Active Substance: ATORVASTATIN CALCIUM
  19. GLICLAZIDE [Suspect]
     Active Substance: GLICLAZIDE
  20. ALLOPURINOL [Suspect]
     Active Substance: ALLOPURINOL
  21. HYDROCHLOROTHIAZIDE [Suspect]
     Active Substance: HYDROCHLOROTHIAZIDE
  22. DENOSUMAB [Suspect]
     Active Substance: DENOSUMAB
  23. HYDROTALCITE [Suspect]
     Active Substance: HYDROTALCITE
  24. ACARBOSE [Suspect]
     Active Substance: ACARBOSE
  25. ISOSORBIDE MONONITRATE [Suspect]
     Active Substance: ISOSORBIDE MONONITRATE
  26. VORTIOXETINE [Suspect]
     Active Substance: VORTIOXETINE
  27. RUFLOXACIN [Suspect]
     Active Substance: RUFLOXACIN
  28. CITALOPRAM [Suspect]
     Active Substance: CITALOPRAM HYDROBROMIDE
  29. METOCLOPRAMIDE [Suspect]
     Active Substance: METOCLOPRAMIDE
  30. SPIRONOLACTONE [Suspect]
     Active Substance: SPIRONOLACTONE
  31. CALCIUM CARBONATE WITH VITAMIN D (CHOLECALCIFEROL) [Interacting]
     Active Substance: CALCIUM CARBONATE\CHOLECALCIFEROL
  32. TORSEMIDE [Concomitant]
     Active Substance: TORSEMIDE
  33. QUETIAPINE [Concomitant]
     Active Substance: QUETIAPINE
  34. INSULIN NOS [Concomitant]
     Active Substance: INSULIN NOS

REACTIONS (36)
  - Deep vein thrombosis [Recovering/Resolving]
  - Melaena [Recovering/Resolving]
  - Motor dysfunction [Recovering/Resolving]
  - Drug interaction [Recovering/Resolving]
  - Neuroglycopenia [Recovering/Resolving]
  - Syncope [Recovering/Resolving]
  - Medication error [Recovering/Resolving]
  - Urinary retention [Recovering/Resolving]
  - Micturition disorder [Recovering/Resolving]
  - Pancreatitis acute [Recovering/Resolving]
  - Abdominal pain upper [Recovering/Resolving]
  - Cognitive disorder [Recovering/Resolving]
  - Sedation [Recovering/Resolving]
  - Gastrointestinal disorder [Recovering/Resolving]
  - Hyponatraemia [Recovering/Resolving]
  - Hyperkalaemia [Recovering/Resolving]
  - Coronary artery disease [Recovering/Resolving]
  - Hypoglycaemia [None]
  - Peripheral circulatory failure [Recovering/Resolving]
  - Fall [None]
  - Peptic ulcer [Recovering/Resolving]
  - Gastric polyps [Recovering/Resolving]
  - Dysuria [Recovering/Resolving]
  - Muscle rigidity [Recovering/Resolving]
  - Pruritus [Recovering/Resolving]
  - Bradykinesia [Recovering/Resolving]
  - Multiple drug therapy [Recovering/Resolving]
  - Dizziness [Recovering/Resolving]
  - Hypotension [Recovering/Resolving]
  - Blood pressure decreased [Recovering/Resolving]
  - Osteoporosis [Recovering/Resolving]
  - Mobility decreased [Recovering/Resolving]
  - Nausea [Recovering/Resolving]
  - Stupor [Recovering/Resolving]
  - Hiatus hernia [Recovering/Resolving]
  - Atrioventricular block first degree [Recovering/Resolving]
